FAERS Safety Report 20422521 (Version 3)
Quarter: 2024Q1

REPORT INFORMATION
  Report Type: Report from Study
  Country: US (occurrence: US)
  Receive Date: 20220203
  Receipt Date: 20240219
  Transmission Date: 20240410
  Serious: No
  Sender: FDA-Public Use
  Company Number: US-AURINIA PHARMACEUTICALS INC.-AUR-000825

PATIENT
  Age: 42 Year
  Sex: Female

DRUGS (2)
  1. LUPKYNIS [Suspect]
     Active Substance: VOCLOSPORIN
     Indication: Lupus nephritis
     Dosage: 23.7 MILLIGRAM QAM AND 15.8 MILLIGRAM QPM
     Dates: start: 20210522
  2. LUPKYNIS [Suspect]
     Active Substance: VOCLOSPORIN
     Dosage: 23.7 MILLIGRAM, BID
     Route: 048
     Dates: start: 20210522

REACTIONS (3)
  - Peripheral swelling [Recovered/Resolved]
  - Hair growth abnormal [Unknown]
  - Joint swelling [Recovered/Resolved]

NARRATIVE: CASE EVENT DATE: 20211225
